FAERS Safety Report 7293932-0 (Version None)
Quarter: 2011Q1

REPORT INFORMATION
  Report Type: 
  Country: None (occurrence: None)
  Receive Date: 20110204
  Receipt Date: 20110125
  Transmission Date: 20110831
  Serious: Yes (Hospitalization)
  Sender: FDA-Public Use
  Company Number: 2010US004390

PATIENT
  Age: 69 Year
  Sex: Female
  Weight: 66 kg

DRUGS (1)
  1. AMEVIVE [Suspect]
     Indication: PSORIASIS
     Dosage: 15 MG, WEEKLY, INTRAMUSCULAR
     Route: 030
     Dates: start: 20090403, end: 20090615

REACTIONS (5)
  - GASTROENTERITIS [None]
  - ROTATOR CUFF SYNDROME [None]
  - GASTROINTESTINAL INFLAMMATION [None]
  - VIRAL INFECTION [None]
  - BACTERIAL INFECTION [None]
